FAERS Safety Report 24223249 (Version 2)
Quarter: 2024Q3

REPORT INFORMATION
  Report Type: Spontaneous
  Country: GB (occurrence: GB)
  Receive Date: 20240819
  Receipt Date: 20240826
  Transmission Date: 20241017
  Serious: Yes (Death, Hospitalization, Other)
  Sender: MYLAN
  Company Number: None

PATIENT
  Sex: Female

DRUGS (10)
  1. APIXABAN [Suspect]
     Active Substance: APIXABAN
     Indication: Atrial fibrillation
     Dosage: 5 MILLIGRAM, BID (TWICE DAILY- EVERY 12 HOURS)
     Route: 048
     Dates: start: 20220411, end: 20240722
  2. BISOPROLOL [Concomitant]
     Active Substance: BISOPROLOL\BISOPROLOL FUMARATE
     Indication: Hypertension
     Dosage: 1.25 MILLIGRAM, QD (OD)
     Route: 048
     Dates: start: 2022, end: 20240708
  3. ACETAMINOPHEN [Concomitant]
     Active Substance: ACETAMINOPHEN
     Indication: Analgesic therapy
     Dosage: 500 MILLIGRAM, QID (QDS)
     Route: 048
     Dates: start: 20190408, end: 20240529
  4. LOPERAMIDE [Concomitant]
     Active Substance: LOPERAMIDE
     Indication: Short-bowel syndrome
     Dosage: TID (IV TDS)
     Route: 048
     Dates: start: 20180816, end: 20240717
  5. AMLODIPINE [Concomitant]
     Active Substance: AMLODIPINE BESYLATE
     Indication: Hypertension
     Dosage: 5 MILLIGRAM, QD (OD)
     Route: 048
     Dates: start: 20220404, end: 20240708
  6. ROPINIROLE [Concomitant]
     Active Substance: ROPINIROLE
     Indication: Restless legs syndrome
     Dosage: 500 MICROGRAM, QD (ON)
     Route: 048
     Dates: start: 20200129, end: 20240708
  7. THIAMINE [Concomitant]
     Active Substance: THIAMINE
     Indication: Short-bowel syndrome
     Dosage: 50 MILLIGRAM, TID (TDS)
     Route: 048
     Dates: start: 20180525, end: 20240722
  8. CHOLECALCIFEROL [Concomitant]
     Active Substance: CHOLECALCIFEROL
     Indication: Vitamin D deficiency
     Dosage: 800 INTERNATIONAL UNIT, QD (T OD)
     Route: 048
     Dates: start: 20240507, end: 20240628
  9. FOLIC ACID\IRON\MINERALS\VITAMINS [Concomitant]
     Active Substance: FOLIC ACID\IRON\MINERALS\VITAMINS
     Indication: Short-bowel syndrome
     Dosage: QID (T QDS)
     Route: 048
     Dates: start: 20180525, end: 20240722
  10. QUESTRAN [Concomitant]
     Active Substance: CHOLESTYRAMINE
     Indication: Short-bowel syndrome
     Dosage: 4 GRAM, QD  (TT DAILY)
     Route: 048
     Dates: start: 20221207, end: 20240708

REACTIONS (1)
  - Cerebral haemorrhage [Fatal]

NARRATIVE: CASE EVENT DATE: 20240720
